FAERS Safety Report 20899434 (Version 1)
Quarter: 2022Q2

REPORT INFORMATION
  Report Type: Spontaneous
  Country: CN (occurrence: CN)
  Receive Date: 20220601
  Receipt Date: 20220601
  Transmission Date: 20220721
  Serious: Yes (Hospitalization, Other)
  Sender: FDA-Public Use
  Company Number: None

PATIENT
  Age: 8 Year
  Sex: Male
  Weight: 31 kg

DRUGS (22)
  1. CYCLOPHOSPHAMIDE [Suspect]
     Active Substance: CYCLOPHOSPHAMIDE
     Indication: Non-Hodgkin^s lymphoma
     Dosage: 0.32 G ONCE DAILY, 300 MG/M2 (D1)
     Route: 041
     Dates: start: 20220429, end: 20220429
  2. CYCLOPHOSPHAMIDE [Suspect]
     Active Substance: CYCLOPHOSPHAMIDE
     Dosage: DOSE RE-INTRODUCED
     Route: 041
  3. CYCLOPHOSPHAMIDE [Suspect]
     Active Substance: CYCLOPHOSPHAMIDE
     Dosage: 250 MG/M2 (D2-D4)
     Route: 041
     Dates: start: 20220507, end: 20220509
  4. CYCLOPHOSPHAMIDE [Suspect]
     Active Substance: CYCLOPHOSPHAMIDE
     Dosage: DOSE RE-INTRODUCED
     Route: 041
  5. DAUNORUBICIN HYDROCHLORIDE [Suspect]
     Active Substance: DAUNORUBICIN HYDROCHLORIDE
     Indication: Non-Hodgkin^s lymphoma
     Dosage: 32 MG ONCE DAILY, 30 MG/M2 (D2-D3)
     Route: 041
     Dates: start: 20220507, end: 20220508
  6. DAUNORUBICIN HYDROCHLORIDE [Suspect]
     Active Substance: DAUNORUBICIN HYDROCHLORIDE
     Dosage: DOSE RE-INTRODUCED
     Route: 041
  7. VINCRISTINE SULFATE [Suspect]
     Active Substance: VINCRISTINE SULFATE
     Indication: Non-Hodgkin^s lymphoma
     Dosage: 1.070000 MG ONCE DAILY1MG/M2 (D1)
     Route: 041
     Dates: start: 20220429, end: 20220429
  8. VINCRISTINE SULFATE [Suspect]
     Active Substance: VINCRISTINE SULFATE
     Dosage: DOSE RE-INTRODUCED
     Route: 041
  9. VINCRISTINE SULFATE [Suspect]
     Active Substance: VINCRISTINE SULFATE
     Dosage: 2.000000MG ONCE DAILY2 MG/M2 (D1)
     Route: 041
     Dates: start: 20220506, end: 20220506
  10. VINCRISTINE SULFATE [Suspect]
     Active Substance: VINCRISTINE SULFATE
     Dosage: DOSE RE-INTRODUCED
     Route: 041
  11. METHOTREXATE [Suspect]
     Active Substance: METHOTREXATE
     Indication: Non-Hodgkin^s lymphoma
     Dosage: 15 MG, QD
     Route: 037
     Dates: start: 20220429, end: 20220429
  12. METHOTREXATE [Suspect]
     Active Substance: METHOTREXATE
     Dosage: DOSE RE-INTRODUCED
     Route: 037
  13. METHOTREXATE [Suspect]
     Active Substance: METHOTREXATE
     Dosage: 3.21 G, QD
     Route: 041
     Dates: start: 20220506, end: 20220506
  14. METHOTREXATE [Suspect]
     Active Substance: METHOTREXATE
     Dosage: DOSE RE-INTRODUCED
     Route: 041
  15. PREDNISONE ACETATE [Suspect]
     Active Substance: PREDNISONE ACETATE
     Indication: Non-Hodgkin^s lymphoma
     Dosage: 6.000000 TABLETS ONCE DAILY, 60 MG/M2 (D1-D7)]
     Route: 048
     Dates: start: 20220429, end: 20220505
  16. PREDNISONE ACETATE [Suspect]
     Active Substance: PREDNISONE ACETATE
     Dosage: DOSE RE-INTRODUCED
     Route: 048
  17. PREDNISONE ACETATE [Suspect]
     Active Substance: PREDNISONE ACETATE
     Dosage: 6.5 TABLETS ONCE DAILY, 60 MG/M2 (D1-D8)
     Route: 048
     Dates: start: 20220506, end: 20220513
  18. PREDNISONE ACETATE [Suspect]
     Active Substance: PREDNISONE ACETATE
     Dosage: DOSE RE-INTRODUCED
     Route: 048
  19. DEXAMETHASONE [Suspect]
     Active Substance: DEXAMETHASONE
     Indication: Non-Hodgkin^s lymphoma
     Dosage: 4 MG
     Route: 065
     Dates: start: 20220429
  20. DEXAMETHASONE [Suspect]
     Active Substance: DEXAMETHASONE
     Dosage: 4 MG
     Route: 065
     Dates: start: 20220507
  21. DEXAMETHASONE [Suspect]
     Active Substance: DEXAMETHASONE
     Dosage: 4 MG
     Route: 065
     Dates: start: 20220513
  22. DEXAMETHASONE [Suspect]
     Active Substance: DEXAMETHASONE
     Dosage: DOSE RE-INTRODUCED
     Route: 065

REACTIONS (6)
  - Gastroenteritis salmonella [Unknown]
  - Liver injury [Recovering/Resolving]
  - Myelosuppression [Recovering/Resolving]
  - Infection [Recovering/Resolving]
  - Diarrhoea [Recovering/Resolving]
  - Abdominal pain [Recovering/Resolving]

NARRATIVE: CASE EVENT DATE: 20220509
